FAERS Safety Report 22012053 (Version 6)
Quarter: 2025Q1

REPORT INFORMATION
  Report Type: Report from Study
  Country: MX (occurrence: MX)
  Receive Date: 20230220
  Receipt Date: 20250319
  Transmission Date: 20250409
  Serious: Yes (Other)
  Sender: NOVARTIS
  Company Number: MX-002147023-NVSC2023MX037926

PATIENT
  Age: 31 Year
  Sex: Female
  Weight: 78.7 kg

DRUGS (2)
  1. TASIGNA [Suspect]
     Active Substance: NILOTINIB
     Indication: Chronic myeloid leukaemia
     Route: 048
     Dates: start: 202211
  2. TASIGNA [Suspect]
     Active Substance: NILOTINIB
     Dosage: 200 MG, BID (2 OF 200 MG)
     Route: 048
     Dates: start: 202309

REACTIONS (44)
  - Primary adrenal insufficiency [Recovered/Resolved]
  - Hypothyroidism [Not Recovered/Not Resolved]
  - Adrenal insufficiency [Not Recovered/Not Resolved]
  - Mobility decreased [Unknown]
  - Feeling hot [Unknown]
  - Thirst [Unknown]
  - Irritability [Unknown]
  - Dyslexia [Unknown]
  - Memory impairment [Unknown]
  - Hyperhidrosis [Unknown]
  - Hypoaesthesia [Unknown]
  - Depression [Unknown]
  - Depressed mood [Unknown]
  - Hunger [Unknown]
  - Vomiting [Unknown]
  - Grip strength decreased [Unknown]
  - Fatigue [Unknown]
  - Headache [Not Recovered/Not Resolved]
  - Tremor [Unknown]
  - Feeling cold [Unknown]
  - Decreased appetite [Unknown]
  - Pruritus [Unknown]
  - Secondary adrenocortical insufficiency [Unknown]
  - Hair texture abnormal [Unknown]
  - Thirst decreased [Unknown]
  - Dysphagia [Unknown]
  - Decreased immune responsiveness [Unknown]
  - COVID-19 [Unknown]
  - Poor quality sleep [Unknown]
  - Somnolence [Unknown]
  - Weight decreased [Unknown]
  - Malaise [Unknown]
  - Peripheral swelling [Unknown]
  - Diarrhoea [Unknown]
  - Musculoskeletal chest pain [Unknown]
  - Pyrexia [Unknown]
  - Urticaria [Unknown]
  - Pain [Unknown]
  - Pain in extremity [Unknown]
  - Weight increased [Unknown]
  - Dizziness [Unknown]
  - Constipation [Recovered/Resolved]
  - Arthralgia [Not Recovered/Not Resolved]
  - Heart rate abnormal [Recovered/Resolved]

NARRATIVE: CASE EVENT DATE: 20230901
